FAERS Safety Report 6988270-7 (Version None)
Quarter: 2010Q3

REPORT INFORMATION
  Report Type: 
  Country: None (occurrence: None)
  Receive Date: 20100916
  Receipt Date: 20100907
  Transmission Date: 20110219
  Serious: Yes (Other)
  Sender: FDA-Public Use
  Company Number: US-JNJFOC-20100805091

PATIENT
  Sex: Female
  Weight: 61.69 kg

DRUGS (3)
  1. FENTANYL CITRATE [Suspect]
     Indication: RADICULAR PAIN
     Route: 062
  2. FENTANYL CITRATE [Suspect]
     Route: 062
  3. FENTANYL CITRATE [Suspect]
     Route: 062

REACTIONS (9)
  - BALANCE DISORDER [None]
  - BLOOD GLUCOSE ABNORMAL [None]
  - DIZZINESS [None]
  - FALL [None]
  - PRODUCT PACKAGING ISSUE [None]
  - PRODUCT QUALITY ISSUE [None]
  - PRODUCT SIZE ISSUE [None]
  - TREATMENT NONCOMPLIANCE [None]
  - WRONG TECHNIQUE IN DRUG USAGE PROCESS [None]
